FAERS Safety Report 16164023 (Version 1)
Quarter: 2019Q2

REPORT INFORMATION
  Report Type: Report from Study
  Country: CA (occurrence: CA)
  Receive Date: 20190405
  Receipt Date: 20190405
  Transmission Date: 20190711
  Serious: Yes (Other)
  Sender: FDA-Public Use
  Company Number: CA-JNJFOC-20190301592

PATIENT
  Age: 55 Year
  Sex: Male
  Weight: 82.8 kg

DRUGS (2)
  1. PURINETHOL [Concomitant]
     Active Substance: MERCAPTOPURINE
     Dosage: STRENGTH = 100 MG
     Route: 048
  2. REMICADE [Suspect]
     Active Substance: INFLIXIMAB
     Indication: CROHN^S DISEASE
     Dosage: STRENGTH = 100 MG
     Route: 042
     Dates: start: 20090828

REACTIONS (5)
  - Upper respiratory tract infection [Recovering/Resolving]
  - Weight decreased [Not Recovered/Not Resolved]
  - Fatigue [Unknown]
  - General physical health deterioration [Not Recovered/Not Resolved]
  - Rectal cancer [Recovering/Resolving]

NARRATIVE: CASE EVENT DATE: 20190226
